FAERS Safety Report 8816126 (Version 6)
Quarter: 2013Q3

REPORT INFORMATION
  Report Type: Spontaneous
  Country: US (occurrence: US)
  Receive Date: 20120929
  Receipt Date: 20130717
  Transmission Date: 20140515
  Serious: No
  Sender: FDA-Public Use
  Company Number: US-009507513-1209USA011111

PATIENT
  Age: 82 Year
  Sex: Male

DRUGS (9)
  1. COSOPT [Suspect]
     Indication: GLAUCOMA
     Dosage: ONE DROP IN EACH EYE, TWICE DAILY
     Route: 047
     Dates: start: 20120906
  2. ZIOPTAN [Concomitant]
     Dosage: 1 GTT, QD
     Route: 047
  3. PROCARDIA [Concomitant]
  4. PLAVIX [Concomitant]
  5. LIPITOR [Concomitant]
  6. SPIRONOLACTONE [Concomitant]
  7. DESONIDE [Concomitant]
  8. RESTASIS [Concomitant]
  9. ASPIRIN [Concomitant]

REACTIONS (7)
  - Intraocular pressure increased [Not Recovered/Not Resolved]
  - Eye haemorrhage [Unknown]
  - Eye irritation [Not Recovered/Not Resolved]
  - Product packaging quantity issue [Unknown]
  - Drug dose omission [Unknown]
  - Product packaging quantity issue [Unknown]
  - Drug dose omission [Unknown]
